FAERS Safety Report 19066363 (Version 1)
Quarter: 2021Q1

REPORT INFORMATION
  Report Type: Spontaneous
  Country: US (occurrence: US)
  Receive Date: 20210328
  Receipt Date: 20210328
  Transmission Date: 20210420
  Serious: Yes (Hospitalization)
  Sender: FDA-Public Use
  Company Number: US-TEVA-2021-US-1893752

PATIENT
  Age: 48 Year
  Sex: Female

DRUGS (2)
  1. METHOTREXATE. [Suspect]
     Active Substance: METHOTREXATE
     Indication: PSORIATIC ARTHROPATHY
     Route: 065
  2. INFLIXIMAB [Suspect]
     Active Substance: INFLIXIMAB
     Indication: PSORIATIC ARTHROPATHY
     Route: 065

REACTIONS (5)
  - Cholestasis [Recovered/Resolved]
  - Cardiac tamponade [Recovered/Resolved]
  - Granulomatous liver disease [Recovered/Resolved]
  - Pleural effusion [Recovered/Resolved]
  - Histoplasmosis disseminated [Recovered/Resolved]
